FAERS Safety Report 19975574 (Version 4)
Quarter: 2022Q1

REPORT INFORMATION
  Report Type: Report from Study
  Country: DE (occurrence: DE)
  Receive Date: 20211020
  Receipt Date: 20220105
  Transmission Date: 20220423
  Serious: Yes (Hospitalization, Other)
  Sender: FDA-Public Use
  Company Number: DE-TAKEDA-DE201936917

PATIENT
  Age: 25 Year
  Sex: Female
  Weight: 63 kg

DRUGS (8)
  1. ESOMEPRAZOLE [Suspect]
     Active Substance: ESOMEPRAZOLE
     Indication: Gastric disorder
     Dosage: 20 MILLIGRAM, AS REQD
     Route: 048
     Dates: start: 201909, end: 201909
  2. FLUDROCORTISONE [Suspect]
     Active Substance: FLUDROCORTISONE
     Indication: Hypoaldosteronism
     Dosage: 0.1 MILLIGRAM, 1X/DAY:QD
     Route: 048
     Dates: start: 201906, end: 20190926
  3. FLUDROCORTISONE [Suspect]
     Active Substance: FLUDROCORTISONE
     Dosage: 0.2 MILLIGRAM, 1X/DAY:QD
     Route: 048
     Dates: start: 202001
  4. FLUDROCORTISONE [Suspect]
     Active Substance: FLUDROCORTISONE
     Dosage: 0.15 MILLIGRAM, 1X/DAY:QD
     Route: 048
     Dates: start: 20190927, end: 202001
  5. CYANOCOBALAMIN\PYRIDOXINE HYDROCHLORIDE\THIAMINE [Suspect]
     Active Substance: CYANOCOBALAMIN\PYRIDOXINE HYDROCHLORIDE\THIAMINE
     Indication: Hyperemesis gravidarum
     Dosage: UNK, 1X/DAY QD
     Route: 048
     Dates: start: 201910
  6. HYDROCORTISONE [Suspect]
     Active Substance: HYDROCORTISONE
     Indication: Adrenal insufficiency
     Dosage: 20 MILLIGRAM, 1X/DAY:QD
     Route: 048
     Dates: start: 201510, end: 20200225
  7. HYDROCORTISONE [Suspect]
     Active Substance: HYDROCORTISONE
     Indication: Addison^s disease
     Dosage: 25 MILLIGRAM, 1X/DAY:QD
     Route: 048
     Dates: start: 20200226
  8. FOLIC ACID\VITAMINS [Suspect]
     Active Substance: FOLIC ACID\VITAMINS
     Indication: Alopecia
     Dosage: 3.6 GRAM, 1X/DAY:QD (START DATE: JAN-2020)
     Route: 048
     Dates: start: 202001

REACTIONS (2)
  - Hyperemesis gravidarum [Recovered/Resolved]
  - Exposure during pregnancy [Unknown]

NARRATIVE: CASE EVENT DATE: 20190926
